FAERS Safety Report 6763819-8 (Version None)
Quarter: 2010Q2

REPORT INFORMATION
  Report Type: 
  Country: None (occurrence: None)
  Receive Date: 20100610
  Receipt Date: 20100531
  Transmission Date: 20101027
  Serious: Yes (Other)
  Sender: FDA-Public Use
  Company Number: FR-PFIZER INC-2010067909

PATIENT
  Age: 66 Year
  Sex: Female

DRUGS (10)
  1. ALDACTONE [Suspect]
     Indication: HYPERTENSION
     Dosage: 12.5 MG, 1X/DAY (HALF A 25 MG TABLET PER DAY)
     Dates: start: 20091201
  2. ALDACTONE [Suspect]
     Indication: HYPERALDOSTERONISM
  3. APROVEL [Concomitant]
  4. ISOPTIN [Concomitant]
  5. OROCAL VITAMIN D [Concomitant]
  6. FOSAMAX [Concomitant]
  7. SYMBICORT [Concomitant]
     Indication: ASTHMA
  8. AIROMIR [Concomitant]
     Indication: ASTHMA
  9. LEVOTHYROXINE SODIUM [Concomitant]
  10. NEXIUM [Concomitant]

REACTIONS (6)
  - BLADDER PAIN [None]
  - BLADDER SPASM [None]
  - CALCULUS URINARY [None]
  - CYSTITIS [None]
  - HAEMATURIA [None]
  - SLEEP DISORDER [None]
